FAERS Safety Report 6100347-7 (Version None)
Quarter: 2009Q1

REPORT INFORMATION
  Report Type: 
  Country: None (occurrence: None)
  Receive Date: 20090303
  Receipt Date: 20090219
  Transmission Date: 20090719
  Serious: Yes (Other)
  Sender: FDA-Public Use
  Company Number: CH-ELI_LILLY_AND_COMPANY-CH200902005632

PATIENT
  Age: 40 Year
  Sex: Female

DRUGS (5)
  1. CYMBALTA [Suspect]
     Dosage: 90 MG, DAILY (1/D)
     Route: 048
  2. METHADONE HCL [Concomitant]
     Dosage: 60 MG, DAILY (1/D)
     Route: 048
  3. DIAMORPHINE [Concomitant]
     Dosage: UNK, UNKNOWN
     Route: 065
  4. TEMESTA [Concomitant]
     Dosage: UNK UNK, AS NEEDED
     Route: 048
  5. SEROQUEL [Concomitant]
     Dosage: 125 MG, DAILY (1/D)
     Route: 048

REACTIONS (2)
  - DRUG EXPOSURE DURING PREGNANCY [None]
  - HIGH RISK PREGNANCY [None]
